FAERS Safety Report 5613119-4 (Version None)
Quarter: 2008Q1

REPORT INFORMATION
  Report Type: 
  Country: None (occurrence: None)
  Receive Date: 20080204
  Receipt Date: 20080125
  Transmission Date: 20080703
  Serious: Yes (Death, Life-Threatening)
  Sender: FDA-Public Use
  Company Number: NZ-PFIZER INC-2008009232

PATIENT
  Sex: Male

DRUGS (2)
  1. LIPITOR [Suspect]
  2. QUININE SULPHATE [Suspect]

REACTIONS (1)
  - RHABDOMYOLYSIS [None]
